FAERS Safety Report 10246528 (Version 1)
Quarter: 2014Q2

REPORT INFORMATION
  Report Type: Spontaneous
  Country: US (occurrence: US)
  Receive Date: 20140619
  Receipt Date: 20140619
  Transmission Date: 20141212
  Serious: Yes (Hospitalization)
  Sender: FDA-Public Use
  Company Number: US-AMGEN-USASP2014045293

PATIENT
  Sex: Male

DRUGS (6)
  1. NEULASTA [Suspect]
     Indication: B-CELL LYMPHOMA
     Dosage: UNK
     Route: 065
  2. RITUXIMAB [Concomitant]
     Indication: B-CELL LYMPHOMA
     Dosage: UNK
  3. CYCLOPHOSPHAMIDE [Concomitant]
     Indication: B-CELL LYMPHOMA
     Dosage: UNK
  4. DOXORUBICIN [Concomitant]
     Indication: B-CELL LYMPHOMA
     Dosage: UNK
  5. VINCRISTINE [Concomitant]
     Indication: B-CELL LYMPHOMA
     Dosage: UNK
  6. PREDNISONE [Concomitant]
     Indication: B-CELL LYMPHOMA
     Dosage: UNK

REACTIONS (1)
  - Neutrophil count abnormal [Unknown]
